FAERS Safety Report 6385836-2 (Version None)
Quarter: 2009Q4

REPORT INFORMATION
  Report Type: 
  Country: None (occurrence: None)
  Receive Date: 20091002
  Receipt Date: 20090928
  Transmission Date: 20100525
  Serious: Yes (Disabling)
  Sender: FDA-Public Use
  Company Number: GB-AMGEN-UK366702

PATIENT
  Sex: Male
  Weight: 88.9 kg

DRUGS (2)
  1. PANITUMUMAB [Suspect]
     Indication: COLORECTAL CANCER
     Route: 042
     Dates: start: 20090515
  2. IRINOTECAN HCL [Concomitant]
     Route: 042
     Dates: start: 20090515

REACTIONS (1)
  - ATAXIA [None]
